FAERS Safety Report 14019593 (Version 1)
Quarter: 2017Q3

REPORT INFORMATION
  Report Type: Spontaneous
  Country: US (occurrence: US)
  Receive Date: 20170928
  Receipt Date: 20170928
  Transmission Date: 20171128
  Serious: No
  Sender: FDA-Public Use
  Company Number: US-MYLANLABS-2017M1029839

PATIENT
  Age: 87 Year
  Sex: Male
  Weight: 62 kg

DRUGS (1)
  1. FUROSEMIDE TABLETS USP [Suspect]
     Active Substance: FUROSEMIDE
     Indication: OEDEMA PERIPHERAL
     Dosage: 20 MG, QD
     Route: 048
     Dates: start: 20170506

REACTIONS (2)
  - Arthralgia [Not Recovered/Not Resolved]
  - Laziness [Not Recovered/Not Resolved]

NARRATIVE: CASE EVENT DATE: 20170508
